FAERS Safety Report 8265966-0 (Version None)
Quarter: 2012Q2

REPORT INFORMATION
  Report Type: 
  Country: None (occurrence: None)
  Receive Date: 20120406
  Receipt Date: 20120327
  Transmission Date: 20120825
  Serious: Yes (Other)
  Sender: FDA-Public Use
  Company Number: AT-BRISTOL-MYERS SQUIBB COMPANY-16502346

PATIENT
  Age: 17 Year
  Sex: Male

DRUGS (5)
  1. SINGULAIR [Suspect]
  2. LEVOTHYROXINE SODIUM [Suspect]
     Dosage: 1 DF: 25 DOSAGE UNITS OF-EUTHYROX 75MCG
  3. PARKEMED [Suspect]
     Dosage: 1 DF: 32 DOSAGE OF PARKEMED
  4. GLUCOPHAGE [Suspect]
     Dosage: 1 DF: 38 DOSAGE UNITS OF GLUCOPHAGE 850MG
  5. DESLORATADINE [Suspect]
     Dosage: 1 DF:9 DOSAGE OG AERIUS

REACTIONS (4)
  - TACHYCARDIA [None]
  - NAUSEA [None]
  - INTENTIONAL OVERDOSE [None]
  - MYDRIASIS [None]
